FAERS Safety Report 8811513 (Version 2)
Quarter: 2012Q4

REPORT INFORMATION
  Report Type: 
  Country: IT (occurrence: IT)
  Receive Date: 20120927
  Receipt Date: 20121005
  Transmission Date: 20130627
  Serious: Yes (Other)
  Sender: FDA-Public Use
  Company Number: IT-PFIZER INC-2012234211

PATIENT
  Age: 75 Year
  Sex: Female

DRUGS (1)
  1. TORISEL [Suspect]
     Indication: RENAL NEOPLASM
     Dosage: 20 mg, cyclic
     Route: 042
     Dates: start: 20110905, end: 20120903

REACTIONS (1)
  - Hypertransaminasaemia [Recovered/Resolved]
